FAERS Safety Report 6714924-3 (Version None)
Quarter: 2010Q2

REPORT INFORMATION
  Report Type: 
  Country: None (occurrence: None)
  Receive Date: 20100507
  Receipt Date: 20100325
  Transmission Date: 20101027
  Serious: Yes (Other)
  Sender: FDA-Public Use
  Company Number: US-BAYER-201011896NA

PATIENT
  Age: 29 Year
  Sex: Female
  Weight: 104 kg

DRUGS (7)
  1. YAZ [Suspect]
     Indication: CONTRACEPTION
     Route: 048
     Dates: start: 20070301, end: 20091001
  2. CLARITIN [Concomitant]
     Indication: DRUG USE FOR UNKNOWN INDICATION
     Dates: start: 20070101, end: 20090101
  3. OPC-3 [Concomitant]
     Indication: DRUG USE FOR UNKNOWN INDICATION
     Dates: start: 20090101, end: 20090101
  4. PHENERGAN [Concomitant]
     Indication: DRUG USE FOR UNKNOWN INDICATION
  5. PEPCID [Concomitant]
     Indication: DRUG USE FOR UNKNOWN INDICATION
  6. PROTONIX [Concomitant]
     Indication: DRUG USE FOR UNKNOWN INDICATION
  7. ALLEGRA [Concomitant]
     Indication: RHINITIS ALLERGIC
     Route: 065

REACTIONS (3)
  - CHOLECYSTITIS [None]
  - CHOLELITHIASIS [None]
  - POST PROCEDURAL INFECTION [None]
